FAERS Safety Report 9744399 (Version 2)
Quarter: 2014Q1

REPORT INFORMATION
  Report Type: Report from Study
  Country: NL (occurrence: NL)
  Receive Date: 20131210
  Receipt Date: 20140107
  Transmission Date: 20141002
  Serious: Yes (Hospitalization)
  Sender: FDA-Public Use
  Company Number: NL-TEVA-449626USA

PATIENT
  Age: 53 Year
  Sex: Male
  Weight: 90 kg

DRUGS (7)
  1. BENDAMUSTINE [Suspect]
     Indication: PRODUCT USED FOR UNKNOWN INDICATION
     Route: 042
     Dates: start: 20131128, end: 20131128
  2. LENALIDOMIDE [Suspect]
     Indication: PRODUCT USED FOR UNKNOWN INDICATION
     Route: 048
     Dates: start: 20131102, end: 20131120
  3. RITUXIMAB [Suspect]
     Indication: PRODUCT USED FOR UNKNOWN INDICATION
     Route: 042
     Dates: start: 20131128, end: 20131128
  4. PANTOPRAZOLE [Concomitant]
     Indication: PROPHYLAXIS
     Route: 048
     Dates: start: 20131030
  5. ASCAL [Concomitant]
     Indication: PROPHYLAXIS
     Route: 048
     Dates: start: 20131030
  6. ARANESP [Concomitant]
     Indication: ANAEMIA
     Route: 058
     Dates: start: 20131114
  7. ALLOPURINOL [Concomitant]
     Indication: PROPHYLAXIS
     Route: 048
     Dates: start: 20131104, end: 20131108

REACTIONS (1)
  - Renal failure acute [Recovered/Resolved]
